FAERS Safety Report 18684643 (Version 1)
Quarter: 2020Q4

REPORT INFORMATION
  Report Type: Spontaneous
  Country: US (occurrence: US)
  Receive Date: 20201230
  Receipt Date: 20201230
  Transmission Date: 20210114
  Serious: No
  Sender: FDA-Public Use
  Company Number: US-INDIVIOR LIMITED-INDV-126642-2020

PATIENT
  Age: 30 Year
  Sex: Male

DRUGS (2)
  1. SUBLOCADE [Suspect]
     Active Substance: BUPRENORPHINE
     Indication: DRUG DEPENDENCE
     Dosage: 300 MILLIGRAM, QMO (2 INJECTIONS)
     Route: 058
     Dates: start: 202008
  2. XANAX [Concomitant]
     Active Substance: ALPRAZOLAM
     Indication: ANXIETY
     Dosage: 1 MILLIGRAM, QID
     Route: 065

REACTIONS (2)
  - Drug withdrawal syndrome [Unknown]
  - Anxiety [Unknown]

NARRATIVE: CASE EVENT DATE: 2020
